FAERS Safety Report 23869470 (Version 1)
Quarter: 2024Q2

REPORT INFORMATION
  Report Type: Spontaneous
  Country: US (occurrence: None)
  Receive Date: 20240517
  Receipt Date: 20240517
  Transmission Date: 20240716
  Serious: Yes (Death)
  Sender: FDA-Public Use
  Company Number: None

PATIENT
  Age: 87 Year

DRUGS (1)
  1. PRALUENT [Suspect]
     Active Substance: ALIROCUMAB
     Indication: Cardiovascular disorder
     Dosage: 75 MG/ML OHTER SUBCUTANEOUS
     Route: 058
     Dates: start: 20220629, end: 20240515

REACTIONS (1)
  - Death [None]

NARRATIVE: CASE EVENT DATE: 20240515
